FAERS Safety Report 7667909-7 (Version None)
Quarter: 2011Q3

REPORT INFORMATION
  Report Type: 
  Country: None (occurrence: None)
  Receive Date: 20110808
  Receipt Date: 20110727
  Transmission Date: 20111222
  Serious: Yes (Hospitalization)
  Sender: FDA-Public Use
  Company Number: US-BIOGENIDEC-2011BI002704

PATIENT
  Age: 38 Year
  Sex: Female

DRUGS (4)
  1. TYSABRI [Suspect]
     Route: 042
     Dates: start: 20060825, end: 20071012
  2. TYSABRI [Suspect]
     Route: 042
     Dates: start: 20080711, end: 20100108
  3. TYSABRI [Suspect]
     Indication: MULTIPLE SCLEROSIS
     Route: 042
     Dates: start: 20100402, end: 20110415
  4. AVONEX [Concomitant]
     Indication: MULTIPLE SCLEROSIS
     Route: 030

REACTIONS (6)
  - ABDOMINAL ADHESIONS [None]
  - POSTOPERATIVE HERNIA [None]
  - TREMOR [None]
  - MULTIPLE SCLEROSIS RELAPSE [None]
  - VOLVULUS [None]
  - ULCER HAEMORRHAGE [None]
